FAERS Safety Report 10332151 (Version 1)
Quarter: 2014Q3

REPORT INFORMATION
  Report Type: Spontaneous
  Country: US (occurrence: US)
  Receive Date: 20140722
  Receipt Date: 20140722
  Transmission Date: 20150326
  Serious: Yes (Hospitalization, Other)
  Sender: FDA-Public Use
  Company Number: US-TEVA-495615USA

PATIENT
  Sex: Female
  Weight: 71.28 kg

DRUGS (4)
  1. TREANDA [Suspect]
     Active Substance: BENDAMUSTINE HYDROCHLORIDE
     Indication: B-CELL LYMPHOMA
     Dates: start: 20110102, end: 201104
  2. RITUXAN [Concomitant]
     Active Substance: RITUXIMAB
     Indication: B-CELL LYMPHOMA
  3. BENADRYL [Concomitant]
     Active Substance: DIPHENHYDRAMINE HYDROCHLORIDE
     Indication: PROPHYLAXIS
  4. NEULASTA [Concomitant]
     Active Substance: PEGFILGRASTIM

REACTIONS (17)
  - Bone marrow failure [Recovering/Resolving]
  - Herpes zoster [Recovered/Resolved]
  - Dry skin [Unknown]
  - Hypoaesthesia [Unknown]
  - Liver injury [Recovered/Resolved]
  - Weight decreased [Unknown]
  - Rash [Unknown]
  - Viral infection [Recovered/Resolved]
  - Skin disorder [Not Recovered/Not Resolved]
  - White blood cell count decreased [Unknown]
  - Skin haemorrhage [Unknown]
  - Pruritus [Unknown]
  - Neutropenia [Unknown]
  - Constipation [Not Recovered/Not Resolved]
  - Swelling [Unknown]
  - Pain [Unknown]
  - Nausea [Not Recovered/Not Resolved]
